FAERS Safety Report 8398744-2 (Version None)
Quarter: 2012Q2

REPORT INFORMATION
  Report Type: 
  Country: None (occurrence: None)
  Receive Date: 20120531
  Receipt Date: 20120525
  Transmission Date: 20120825
  Serious: Yes (Hospitalization)
  Sender: FDA-Public Use
  Company Number: GB-ROCHE-667509

PATIENT
  Sex: Female
  Weight: 71 kg

DRUGS (7)
  1. AVASTIN [Suspect]
     Indication: BREAST CANCER
     Dosage: FREQUENCY: OVER 30 MINUTES
     Route: 042
     Dates: start: 20090824, end: 20091120
  2. AVASTIN [Suspect]
     Dosage: FREQUENCY: OVER 30 MINUTES
     Route: 042
  3. DOCETAXEL [Suspect]
     Indication: BREAST CANCER
     Dosage: FREQUENCY: OVER 60 MINUTES
     Route: 042
     Dates: start: 20091027, end: 20091120
  4. VALSARTAN [Concomitant]
  5. BENDROFLUMETHIAZIDE [Concomitant]
     Dosage: DRUG: BENDROFLUMETHAZIDE
  6. DOCETAXEL [Suspect]
     Dosage: FREQUENCY: OVER 60 MINUTES
     Route: 042
  7. SIMVASTATIN [Concomitant]

REACTIONS (2)
  - STOMATITIS [None]
  - PALMAR-PLANTAR ERYTHRODYSAESTHESIA SYNDROME [None]
